FAERS Safety Report 12498924 (Version 1)
Quarter: 2016Q2

REPORT INFORMATION
  Report Type: Spontaneous
  Country: US (occurrence: US)
  Receive Date: 20160627
  Receipt Date: 20160627
  Transmission Date: 20160815
  Serious: No
  Sender: FDA-Public Use
  Company Number: US-TEVA-601026USA

PATIENT
  Sex: Female
  Weight: 68.1 kg

DRUGS (1)
  1. ANASTROZOLE. [Suspect]
     Active Substance: ANASTROZOLE
     Indication: BREAST CANCER
     Route: 065

REACTIONS (4)
  - Malaise [Recovering/Resolving]
  - White blood cell count increased [Unknown]
  - Pain [Recovering/Resolving]
  - Arthralgia [Recovering/Resolving]
